FAERS Safety Report 25092861 (Version 3)
Quarter: 2025Q1

REPORT INFORMATION
  Report Type: Spontaneous
  Country: TR (occurrence: TR)
  Receive Date: 20250319
  Receipt Date: 20250328
  Transmission Date: 20250409
  Serious: Yes (Other)
  Sender: ADVANZ PHARMA
  Company Number: TR-SANOFI-02437679

PATIENT

DRUGS (2)
  1. ALFUZOSIN [Suspect]
     Active Substance: ALFUZOSIN
     Indication: Prostatic disorder
     Route: 065
     Dates: start: 2021
  2. AVODART [Concomitant]
     Active Substance: DUTASTERIDE
     Indication: Prostatic disorder

REACTIONS (2)
  - Choking [Not Recovered/Not Resolved]
  - Dysphagia [Not Recovered/Not Resolved]

NARRATIVE: CASE EVENT DATE: 20210101
